FAERS Safety Report 11103097 (Version 3)
Quarter: 2015Q2

REPORT INFORMATION
  Report Type: Spontaneous
  Country: JP (occurrence: JP)
  Receive Date: 20150511
  Receipt Date: 20150522
  Transmission Date: 20150821
  Serious: Yes (Other)
  Sender: FDA-Public Use
  Company Number: JP-ELI_LILLY_AND_COMPANY-JP201505003094

PATIENT
  Age: 72 Year
  Sex: Female
  Weight: 41 kg

DRUGS (8)
  1. CYMBALTA [Suspect]
     Active Substance: DULOXETINE HYDROCHLORIDE
     Indication: FIBROMYALGIA
     Dosage: 20 MG, QD
     Route: 048
     Dates: start: 20150122, end: 20150123
  2. ETIZOLAM [Concomitant]
     Active Substance: ETIZOLAM
     Indication: INSOMNIA
     Dosage: 0.5 MG, BID
     Route: 048
     Dates: start: 20100325
  3. CEREKINON [Concomitant]
     Active Substance: TRIMEBUTINE
     Indication: PROPHYLAXIS
     Dosage: 100 MG, TID
     Route: 048
     Dates: start: 20111124
  4. EVOXAC [Concomitant]
     Active Substance: CEVIMELINE HYDROCHLORIDE
     Indication: SJOGREN^S SYNDROME
     Dosage: 30 MG, TID
     Route: 048
     Dates: start: 20111124
  5. PREDNISOLONE. [Concomitant]
     Active Substance: PREDNISOLONE
     Indication: SJOGREN^S SYNDROME
     Dosage: 1 MG, QD
     Route: 048
     Dates: start: 20070920
  6. PRAVASTATIN NA [Concomitant]
     Indication: HYPERLIPIDAEMIA
     Dosage: 5 MG, QD
     Route: 048
     Dates: start: 20140925
  7. KETOPROFEN. [Concomitant]
     Active Substance: KETOPROFEN
     Indication: FIBROMYALGIA
     Dosage: 20 MG, QD
     Route: 062
     Dates: start: 20140925
  8. RENIVACE [Concomitant]
     Active Substance: ENALAPRIL
     Indication: HYPERTENSION
     Dosage: 2.5 MG, QD
     Route: 048
     Dates: start: 20140925

REACTIONS (3)
  - Nausea [Recovered/Resolved]
  - Loss of consciousness [Recovered/Resolved]
  - Off label use [Recovered/Resolved]

NARRATIVE: CASE EVENT DATE: 20150122
